FAERS Safety Report 5644075-0 (Version None)
Quarter: 2008Q1

REPORT INFORMATION
  Report Type: 
  Country: None (occurrence: None)
  Receive Date: 20080226
  Receipt Date: 20080215
  Transmission Date: 20080703
  Serious: Yes (Death, Hospitalization)
  Sender: FDA-Public Use
  Company Number: B0508435A

PATIENT
  Age: 32 Year
  Sex: Male

DRUGS (7)
  1. COMBIVIR [Suspect]
     Indication: HIV INFECTION
     Dosage: TWICE PER DAY/ ORAL
     Route: 048
     Dates: start: 20060201, end: 20060701
  2. GANCICLOVIR [Suspect]
     Indication: CYTOMEGALOVIRUS ENTEROCOLITIS
     Dosage: PER DAY
     Dates: start: 20051201, end: 20060101
  3. CYCLOPHOSPHAMIDE [Suspect]
     Indication: DRUG USE FOR UNKNOWN INDICATION
     Dosage: PER DAY
     Dates: start: 20060101, end: 20060101
  4. DOXORUBICIN HYDROCHLORIDE [Suspect]
     Indication: DRUG USE FOR UNKNOWN INDICATION
     Dosage: PER DAY / INTRAVENOUS
     Route: 042
     Dates: start: 20060101, end: 20060101
  5. VINCRISTINE SULFATE [Suspect]
     Indication: DRUG USE FOR UNKNOWN INDICATION
     Dosage: PER DAY / INTRAVENOUS
     Route: 042
     Dates: start: 20060101, end: 20060101
  6. PREDNISOLONE [Suspect]
     Indication: DRUG USE FOR UNKNOWN INDICATION
     Dosage: PER DAY
     Dates: start: 20060101, end: 20060101
  7. EFAVIRENZ [Concomitant]

REACTIONS (3)
  - BONE MARROW FAILURE [None]
  - CD4 LYMPHOCYTES DECREASED [None]
  - RENAL FAILURE [None]
